FAERS Safety Report 7656474-6 (Version None)
Quarter: 2011Q3

REPORT INFORMATION
  Report Type: 
  Country: None (occurrence: None)
  Receive Date: 20110804
  Receipt Date: 20100625
  Transmission Date: 20111222
  Serious: No
  Sender: FDA-Public Use
  Company Number: US-BAUSCH-2010BL003499

PATIENT
  Age: 76 Year
  Sex: Male
  Weight: 104 kg

DRUGS (2)
  1. OPCON-A [Suspect]
     Indication: OFF LABEL USE
     Route: 047
     Dates: start: 20100501, end: 20100601
  2. OPCON-A [Suspect]
     Indication: DRY EYE
     Route: 047
     Dates: start: 20100501, end: 20100601

REACTIONS (2)
  - EYE SWELLING [None]
  - VISION BLURRED [None]
